FAERS Safety Report 19415181 (Version 1)
Quarter: 2021Q2

REPORT INFORMATION
  Report Type: Spontaneous
  Country: US (occurrence: US)
  Receive Date: 20210615
  Receipt Date: 20210615
  Transmission Date: 20210717
  Serious: Yes (Life-Threatening, Other)
  Sender: FDA-Public Use
  Company Number: US-SA-2021SA195608

PATIENT
  Age: 56 Year
  Sex: Male

DRUGS (1)
  1. ZANTAC [Suspect]
     Active Substance: RANITIDINE HYDROCHLORIDE
     Indication: DYSPEPSIA
     Dosage: FREQUENCY: OCCASSIONAL
     Dates: start: 199401, end: 201901

REACTIONS (2)
  - Neoplasm malignant [Unknown]
  - Bladder cancer stage IV [Unknown]

NARRATIVE: CASE EVENT DATE: 20170101
